FAERS Safety Report 23304905 (Version 9)
Quarter: 2024Q4

REPORT INFORMATION
  Report Type: Spontaneous
  Country: SA (occurrence: SA)
  Receive Date: 20231218
  Receipt Date: 20241226
  Transmission Date: 20250114
  Serious: Yes (Death, Hospitalization, Other)
  Sender: NOVARTIS
  Company Number: SA-002147023-NVSC2023SA265401

PATIENT
  Age: 0 Year
  Sex: Male
  Weight: 5.7 kg

DRUGS (6)
  1. ZOLGENSMA [Suspect]
     Active Substance: ONASEMNOGENE ABEPARVOVEC-XIOI
     Indication: Spinal muscular atrophy
     Dosage: UNK, ONCE/SINGLE (ADMINISTRATED AS ONE TIME, SINGLE IV INFUSION)
     Route: 042
     Dates: start: 20231205, end: 20231205
  2. PREDNISOLONE [Concomitant]
     Active Substance: PREDNISOLONE
     Indication: Product used for unknown indication
     Dosage: 3.5 ML, QD (GIVEN TO THE PATIENT 24 HOURS BEFORE ZOLGENSMA IV)
     Route: 065
     Dates: start: 20231204
  3. PREDNISOLONE [Concomitant]
     Active Substance: PREDNISOLONE
     Dosage: UNK, QD (WAS HOLD ON 14 DEC AND 15 DEC 2023, CONTINUED AFTER ZOLGENSMA  ADMINISTRATION)
     Route: 065
  4. PREDNISOLONE [Concomitant]
     Active Substance: PREDNISOLONE
     Dosage: 3.5 ML, QD (REINTRODUCED ON 16 DEC 2023, CONTINUED AFTER ZOLGENSMA ADMINISTRATION)
     Route: 065
     Dates: start: 20231216
  5. PREDNISOLONE [Concomitant]
     Active Substance: PREDNISOLONE
     Dosage: 3.5 ML, QD (ON HOLD FROM 20 DEC TO 23 DEC, CONTINUED AFTER  ZOLGENSMA  ADMINISTRATION)
     Route: 065
  6. PREDNISOLONE [Concomitant]
     Active Substance: PREDNISOLONE
     Dosage: 1.7 ML (EVERY OTHER DAY, CONTINUED AFTER  ZOLGENSMA  ADMINISTRATION)
     Route: 065
     Dates: start: 20240111, end: 20240208

REACTIONS (20)
  - Respiratory failure [Fatal]
  - Respiratory rate increased [Fatal]
  - Bronchitis viral [Recovered/Resolved]
  - Dyspnoea [Recovering/Resolving]
  - Pyrexia [Recovering/Resolving]
  - Heart rate increased [Recovering/Resolving]
  - Dehydration [Recovered/Resolved]
  - Respiratory rate increased [Recovered/Resolved]
  - Product dose omission issue [Unknown]
  - Blood creatinine decreased [Recovering/Resolving]
  - Blood potassium increased [Recovering/Resolving]
  - Blood chloride increased [Recovering/Resolving]
  - Blood uric acid decreased [Recovering/Resolving]
  - Blood phosphorus increased [Recovering/Resolving]
  - Blood bilirubin decreased [Recovering/Resolving]
  - Troponin T increased [Recovering/Resolving]
  - Alanine aminotransferase increased [Recovered/Resolved]
  - Blood alkaline phosphatase decreased [Recovered/Resolved]
  - Blood alkaline phosphatase decreased [Recovering/Resolving]
  - Laboratory test abnormal [Recovered/Resolved]

NARRATIVE: CASE EVENT DATE: 20231205
